FAERS Safety Report 16663903 (Version 1)
Quarter: 2019Q3

REPORT INFORMATION
  Report Type: Spontaneous
  Country: DE (occurrence: DE)
  Receive Date: 20190802
  Receipt Date: 20190802
  Transmission Date: 20191004
  Serious: Yes (Hospitalization, Other)
  Sender: FDA-Public Use
  Company Number: DE-UCBSA-2019032184

PATIENT
  Age: 86 Year
  Sex: Female

DRUGS (2)
  1. BRIVIACT [Suspect]
     Active Substance: BRIVARACETAM
     Indication: PRODUCT USED FOR UNKNOWN INDICATION
     Dosage: 100 MILLIGRAM (MORNING), ONCE DAILY (QD)
  2. BRIVIACT [Suspect]
     Active Substance: BRIVARACETAM
     Dosage: 50MG MORNING AND 100MG EVENING TWICE DAILY

REACTIONS (5)
  - Off label use [Unknown]
  - Somnolence [Unknown]
  - Paraesthesia [Unknown]
  - Pelvic fracture [Unknown]
  - Fatigue [Unknown]
